FAERS Safety Report 10169667 (Version 2)
Quarter: 2014Q3

REPORT INFORMATION
  Report Type: Spontaneous
  Country: US (occurrence: US)
  Receive Date: 20140513
  Receipt Date: 20140804
  Transmission Date: 20150326
  Serious: No
  Sender: FDA-Public Use
  Company Number: US-009507513-1405USA003107

PATIENT
  Sex: Female
  Weight: 95.24 kg

DRUGS (1)
  1. CLARITIN [Suspect]
     Active Substance: LORATADINE
     Indication: SINUS HEADACHE
     Dosage: 10 MG, QPM
     Route: 048

REACTIONS (2)
  - Off label use [Unknown]
  - Dizziness [Unknown]
